FAERS Safety Report 9129050 (Version 5)
Quarter: 2014Q1

REPORT INFORMATION
  Report Type: Report from Study
  Country: CA (occurrence: CA)
  Receive Date: 20130125
  Receipt Date: 20140319
  Transmission Date: 20141002
  Serious: Yes (Hospitalization)
  Sender: FDA-Public Use
  Company Number: CA-JNJFOC-20130111973

PATIENT
  Age: 52 Year
  Sex: Male
  Weight: 94.35 kg

DRUGS (2)
  1. STELARA [Suspect]
     Indication: PSORIASIS
     Route: 058
     Dates: start: 200707
  2. CORTICOSTEROIDS [Concomitant]

REACTIONS (2)
  - Intervertebral discitis [Recovered/Resolved]
  - Extradural abscess [Recovered/Resolved]
